FAERS Safety Report 11593761 (Version 3)
Quarter: 2016Q1

REPORT INFORMATION
  Report Type: Spontaneous
  Country: US (occurrence: US)
  Receive Date: 20151005
  Receipt Date: 20160113
  Transmission Date: 20160525
  Serious: Yes (Hospitalization)
  Sender: FDA-Public Use
  Company Number: US-PFIZER INC-2015317237

PATIENT
  Age: 69 Year
  Sex: Female
  Weight: 51 kg

DRUGS (1)
  1. XALKORI [Suspect]
     Active Substance: CRIZOTINIB
     Indication: NEOPLASM MALIGNANT
     Dosage: 250 MG, 2X/DAY (ONE CAPSULE)
     Route: 048
     Dates: start: 201506

REACTIONS (9)
  - Malaise [Unknown]
  - Decreased appetite [Unknown]
  - Hypophagia [Unknown]
  - Dizziness [Unknown]
  - Vomiting [Unknown]
  - Weight decreased [Unknown]
  - Sinusitis [Recovered/Resolved]
  - Nausea [Unknown]
  - Diarrhoea [Unknown]

NARRATIVE: CASE EVENT DATE: 2015
